FAERS Safety Report 23377386 (Version 1)
Quarter: 2024Q1

REPORT INFORMATION
  Report Type: Spontaneous
  Country: US (occurrence: None)
  Receive Date: 20240108
  Receipt Date: 20240108
  Transmission Date: 20240410
  Serious: No
  Sender: FDA-Public Use
  Company Number: 2023A292733

PATIENT
  Age: 27081 Day
  Sex: Female

DRUGS (1)
  1. FASENRA [Suspect]
     Active Substance: BENRALIZUMAB
     Route: 058

REACTIONS (8)
  - Skin disorder [Unknown]
  - Haemorrhage subcutaneous [Unknown]
  - Fatigue [Unknown]
  - Pharyngeal swelling [Unknown]
  - Dysphagia [Unknown]
  - Dyspnoea [Unknown]
  - Dermatitis allergic [Unknown]
  - Urticaria [Unknown]

NARRATIVE: CASE EVENT DATE: 20231217
